FAERS Safety Report 21208595 (Version 1)
Quarter: 2022Q3

REPORT INFORMATION
  Report Type: Spontaneous
  Country: US (occurrence: None)
  Receive Date: 20220811
  Receipt Date: 20220811
  Transmission Date: 20221027
  Serious: Yes (Death)
  Sender: FDA-Public Use
  Company Number: None

PATIENT
  Sex: Female

DRUGS (1)
  1. TADALAFIL [Suspect]
     Active Substance: TADALAFIL
     Indication: Pulmonary arterial hypertension
     Dosage: 40MG DAILY ORAL
     Route: 048
     Dates: start: 202012

REACTIONS (6)
  - Pain in extremity [None]
  - Urinary tract infection [None]
  - Multiple organ dysfunction syndrome [None]
  - Blood pressure decreased [None]
  - Iatrogenic injury [None]
  - Pneumothorax [None]
